FAERS Safety Report 4513623-6 (Version None)
Quarter: 2004Q4

REPORT INFORMATION
  Report Type: 
  Country: None (occurrence: None)
  Receive Date: 20041130
  Receipt Date: 20040816
  Transmission Date: 20050328
  Serious: No
  Sender: FDA-Public Use
  Company Number: US-GLAXOSMITHKLINE-A0522238A

PATIENT
  Age: 56 Year
  Sex: Female

DRUGS (7)
  1. WELLBUTRIN XL [Suspect]
     Indication: DEPRESSION
     Dosage: 300MG PER DAY
     Route: 048
     Dates: start: 20040601
  2. KLOR-CON [Concomitant]
  3. ATENOLOL [Concomitant]
  4. HYDROCHLOROTHIAZIDE [Concomitant]
  5. ESTRATEST H.S. [Concomitant]
  6. EFFEXOR XR [Concomitant]
  7. PROVERA [Concomitant]

REACTIONS (3)
  - DYSPEPSIA [None]
  - FATIGUE [None]
  - HEADACHE [None]
